FAERS Safety Report 7676087-X (Version None)
Quarter: 2011Q3

REPORT INFORMATION
  Report Type: 
  Country: None (occurrence: None)
  Receive Date: 20110811
  Receipt Date: 20110801
  Transmission Date: 20111222
  Serious: Yes (Other)
  Sender: FDA-Public Use
  Company Number: US-SHIRE-ALL1-2011-02598

PATIENT
  Sex: Male
  Weight: 64.9 kg

DRUGS (5)
  1. TYLENOL (CAPLET) [Concomitant]
     Indication: PYREXIA
  2. TEGRETOL [Concomitant]
     Indication: PARAESTHESIA
     Dosage: 200 MG, 2X/DAY:BID
     Route: 048
     Dates: start: 20090101
  3. AGALSIDASE ALFA [Suspect]
     Dosage: UNK, UNKNOWN
     Route: 041
     Dates: start: 20110610
  4. TYLENOL (CAPLET) [Concomitant]
     Indication: SINUSITIS
     Dosage: 1000 MG, ONE DOSE
     Route: 048
     Dates: start: 20110103, end: 20110103
  5. AGALSIDASE ALFA (REPLAGAL) [Suspect]
     Indication: FABRY'S DISEASE
     Dosage: UNK, UNKNOWN
     Route: 041
     Dates: start: 20101212, end: 20110328

REACTIONS (1)
  - MATERNAL EXPOSURE BEFORE PREGNANCY [None]
